FAERS Safety Report 4365208-2 (Version None)
Quarter: 2004Q2

REPORT INFORMATION
  Report Type: 
  Country: None (occurrence: None)
  Receive Date: 20040525
  Receipt Date: 20040416
  Transmission Date: 20050107
  Serious: No
  Sender: FDA-Public Use
  Company Number: PHEH2004US03183

PATIENT
  Age: 61 Year
  Sex: Female

DRUGS (5)
  1. ZELNORM [Suspect]
     Indication: IRRITABLE BOWEL SYNDROME
     Dosage: 6 MG, ORAL
     Route: 048
     Dates: start: 20040315, end: 20040317
  2. LIPITOR [Concomitant]
  3. CELEXA [Concomitant]
  4. PROTONIX [Concomitant]
  5. ZETIA [Concomitant]

REACTIONS (2)
  - HANGOVER [None]
  - HEADACHE [None]
